FAERS Safety Report 19176347 (Version 3)
Quarter: 2021Q2

REPORT INFORMATION
  Report Type: Spontaneous
  Country: MX (occurrence: MX)
  Receive Date: 20210423
  Receipt Date: 20210527
  Transmission Date: 20210717
  Serious: Yes (Death, Hospitalization)
  Sender: FDA-Public Use
  Company Number: MX-DSJP-DSE-2021-112061

PATIENT
  Age: 77 Year
  Sex: Female

DRUGS (1)
  1. LIXIANA 60MG [Suspect]
     Active Substance: EDOXABAN TOSYLATE
     Indication: CORONAVIRUS INFECTION
     Dosage: 60 MG, QD
     Route: 048
     Dates: start: 20210414, end: 202104

REACTIONS (5)
  - Diverticulitis [Fatal]
  - Rectal haemorrhage [Not Recovered/Not Resolved]
  - Product use in unapproved indication [Recovered/Resolved]
  - Off label use [Recovered/Resolved]
  - Sepsis [Fatal]

NARRATIVE: CASE EVENT DATE: 20210414
